FAERS Safety Report 5162877-4 (Version None)
Quarter: 2006Q4

REPORT INFORMATION
  Report Type: 
  Country: None (occurrence: None)
  Receive Date: 20061201
  Receipt Date: 20061127
  Transmission Date: 20070319
  Serious: Yes (Disabling)
  Sender: FDA-Public Use
  Company Number: NL-GLAXOSMITHKLINE-B0448889A

PATIENT
  Age: 43 Year
  Sex: Female

DRUGS (2)
  1. SEROXAT [Suspect]
     Indication: MENTAL DISORDER
     Dosage: 20MG PER DAY
     Dates: start: 19960101, end: 20060501
  2. NO CONCURRENT MEDICATION [Concomitant]

REACTIONS (7)
  - ACCOMMODATION DISORDER [None]
  - DISTURBANCE IN ATTENTION [None]
  - DIZZINESS [None]
  - DRUG WITHDRAWAL SYNDROME [None]
  - FEELING ABNORMAL [None]
  - NAUSEA [None]
  - VERTIGO [None]
